FAERS Safety Report 5196600-4 (Version None)
Quarter: 2006Q4

REPORT INFORMATION
  Report Type: 
  Country: None (occurrence: None)
  Receive Date: 20061229
  Receipt Date: 20061229
  Transmission Date: 20070319
  Serious: No
  Sender: FDA-Public Use
  Company Number: None

PATIENT

DRUGS (1)
  1. PREDNISONE TAB [Suspect]
     Dosage: TABLET

REACTIONS (29)
  - ANGINA PECTORIS [None]
  - ANXIETY [None]
  - ARTHRALGIA [None]
  - CHEST PAIN [None]
  - CONTUSION [None]
  - CUSHINGOID [None]
  - DEPRESSION [None]
  - DRUG DISPENSING ERROR [None]
  - EPISTAXIS [None]
  - FATIGUE [None]
  - HEADACHE [None]
  - HIRSUTISM [None]
  - HYPERTENSION [None]
  - INCORRECT DOSE ADMINISTERED [None]
  - INCREASED APPETITE [None]
  - INFECTION IN AN IMMUNOCOMPROMISED HOST [None]
  - INSOMNIA [None]
  - IRRITABILITY [None]
  - JOINT SWELLING [None]
  - MEDICATION ERROR [None]
  - MOOD ALTERED [None]
  - OEDEMA PERIPHERAL [None]
  - OVERDOSE [None]
  - PAIN OF SKIN [None]
  - SKIN ATROPHY [None]
  - SKIN FISSURES [None]
  - TEARFULNESS [None]
  - TINNITUS [None]
  - WEIGHT INCREASED [None]
